FAERS Safety Report 8847560 (Version 1)
Quarter: 2012Q4

REPORT INFORMATION
  Report Type: 
  Country: US (occurrence: US)
  Receive Date: 20121018
  Receipt Date: 20121018
  Transmission Date: 20130627
  Serious: No
  Sender: FDA-Public Use
  Company Number: US-MYLANLABS-2011S1026259

PATIENT
  Age: 17 Year
  Sex: Male

DRUGS (3)
  1. RISPERIDONE [Suspect]
     Route: 048
     Dates: start: 20110914, end: 20111201
  2. MELATONIN [Concomitant]
     Indication: INSOMNIA
  3. GINKGO [Concomitant]
     Indication: DISTURBANCE IN ATTENTION

REACTIONS (5)
  - Suicidal ideation [Recovering/Resolving]
  - Chromaturia [Recovering/Resolving]
  - Weight decreased [Recovering/Resolving]
  - Lip dry [Recovering/Resolving]
  - Nasal congestion [Recovering/Resolving]
